FAERS Safety Report 14626541 (Version 2)
Quarter: 2018Q4

REPORT INFORMATION
  Report Type: Report from Study
  Country: US (occurrence: US)
  Receive Date: 20180312
  Receipt Date: 20181203
  Transmission Date: 20190204
  Serious: Yes (Death, Hospitalization, Other)
  Sender: FDA-Public Use
  Company Number: US-MYLANLABS-2018M1015457

PATIENT
  Age: 70 Year
  Sex: Male
  Weight: 105 kg

DRUGS (15)
  1. CYCLOPHOSPHAMIDE. [Suspect]
     Active Substance: CYCLOPHOSPHAMIDE
     Indication: PRODUCT USED FOR UNKNOWN INDICATION
     Dosage: 725 MILLIGRAM
     Dates: start: 20180227
  2. PREDNISONE. [Suspect]
     Active Substance: PREDNISONE
     Indication: PRODUCT USED FOR UNKNOWN INDICATION
     Dosage: 100 MILLIGRAM
     Dates: start: 20180223, end: 20180224
  3. ETOPOSIDE. [Suspect]
     Active Substance: ETOPOSIDE
     Indication: PRODUCT USED FOR UNKNOWN INDICATION
     Dosage: 115 MILLIGRAM
  4. CLOZAPINE. [Suspect]
     Active Substance: CLOZAPINE
     Indication: SCHIZOPHRENIA
     Dosage: 4 DF, QD
     Dates: end: 201803
  5. CLOZAPINE. [Suspect]
     Active Substance: CLOZAPINE
     Dosage: 450 MILLIGRAM, HS
     Dates: start: 20180210, end: 20180214
  6. RITUXIMAB. [Suspect]
     Active Substance: RITUXIMAB
     Indication: PRODUCT USED FOR UNKNOWN INDICATION
     Dosage: 200 MILLIGRAM
     Dates: start: 20180223
  7. CLOZAPINE. [Suspect]
     Active Substance: CLOZAPINE
     Dosage: 100 MILLIGRAM, HS
     Dates: start: 20180305
  8. CLOZAPINE. [Suspect]
     Active Substance: CLOZAPINE
     Dosage: 400 MILLIGRAM, HS
     Dates: start: 20180307, end: 20180317
  9. CLOZAPINE. [Suspect]
     Active Substance: CLOZAPINE
     Dosage: 400 MILLIGRAM, HS
     Dates: start: 20180215, end: 20180226
  10. CLOZAPINE. [Suspect]
     Active Substance: CLOZAPINE
     Dosage: 200 MILLIGRAM, HS
     Dates: start: 20180306
  11. CLOZAPINE. [Suspect]
     Active Substance: CLOZAPINE
     Dosage: UNK
  12. PREDNISONE. [Suspect]
     Active Substance: PREDNISONE
     Dosage: 50 MILLIGRAM
     Dates: start: 20180225, end: 20180227
  13. DOXORUBICIN [Suspect]
     Active Substance: DOXORUBICIN
     Indication: PRODUCT USED FOR UNKNOWN INDICATION
     Dosage: 23 MILLIGRAM
     Dates: start: 20180223, end: 20180226
  14. RITUXIMAB. [Suspect]
     Active Substance: RITUXIMAB
     Dosage: 700 MILLIGRAM
     Dates: start: 20180224
  15. VINCRISTINE [Suspect]
     Active Substance: VINCRISTINE
     Indication: PRODUCT USED FOR UNKNOWN INDICATION
     Dosage: 0.9 MILLIGRAM

REACTIONS (8)
  - Death [Fatal]
  - Diffuse large B-cell lymphoma [Unknown]
  - Diarrhoea [Unknown]
  - Dizziness [Unknown]
  - Pancytopenia [Unknown]
  - Febrile neutropenia [Recovering/Resolving]
  - Gastrointestinal haemorrhage [Recovering/Resolving]
  - Fall [Unknown]

NARRATIVE: CASE EVENT DATE: 2018
